FAERS Safety Report 8452668-0 (Version None)
Quarter: 2012Q2

REPORT INFORMATION
  Report Type: 
  Country: None (occurrence: None)
  Receive Date: 20120620
  Receipt Date: 20120423
  Transmission Date: 20120825
  Serious: No
  Sender: FDA-Public Use
  Company Number: US-VERTEX PHARMACEUTICALS INC.-AE-2012-005801

PATIENT
  Sex: Female

DRUGS (8)
  1. PEGASYS [Concomitant]
     Indication: HEPATITIS C
     Route: 058
  2. CELEXA [Concomitant]
     Route: 048
  3. GLIPIZIDE [Concomitant]
     Route: 048
  4. RIBAVIRIN [Concomitant]
     Indication: HEPATITIS C
     Route: 048
  5. HEPARIN LOCK-FLUSH [Concomitant]
  6. HUMALOG [Concomitant]
  7. INCIVEK [Suspect]
     Indication: HEPATITIS C
     Route: 048
  8. METFORMIN HCL [Concomitant]
     Route: 048

REACTIONS (4)
  - DYSPNOEA [None]
  - SPLENOMEGALY [None]
  - PAIN [None]
  - INSOMNIA [None]
